FAERS Safety Report 5625494-5 (Version None)
Quarter: 2008Q1

REPORT INFORMATION
  Report Type: 
  Country: None (occurrence: None)
  Receive Date: 20080208
  Receipt Date: 20071227
  Transmission Date: 20080703
  Serious: Yes (Disabling, Other)
  Sender: FDA-Public Use
  Company Number: 2008003291

PATIENT
  Age: 81 Year
  Sex: Female

DRUGS (7)
  1. CETIRIZINE HCL [Suspect]
     Indication: PRURITUS
     Dosage: 10 MG, ORAL
     Route: 048
     Dates: start: 20071023, end: 20071024
  2. HYDROXYZINE [Suspect]
     Indication: PRURITUS
     Dosage: 50 MG, ORAL
     Route: 048
     Dates: start: 20071023, end: 20071024
  3. DIGOXIN [Concomitant]
  4. CAPTOPRIL [Concomitant]
  5. SPIRONOLACTONE [Concomitant]
  6. POTASSIUM CHLORIDE [Concomitant]
  7. PROPRANOLOL [Concomitant]

REACTIONS (2)
  - BALANCE DISORDER [None]
  - VERTIGO [None]
